FAERS Safety Report 7085201-9 (Version None)
Quarter: 2010Q4

REPORT INFORMATION
  Report Type: 
  Country: None (occurrence: None)
  Receive Date: 20101027
  Receipt Date: 20101013
  Transmission Date: 20110411
  Serious: Yes (Death, Other)
  Sender: FDA-Public Use
  Company Number: 011542

PATIENT
  Age: 62 Year
  Sex: Male

DRUGS (5)
  1. BUSULFEX [Suspect]
     Indication: BONE MARROW CONDITIONING REGIMEN
     Dosage: 2 MG/KG, DAILY DOSE,
  2. FLUDARABINE PHOSPHATE [Concomitant]
  3. ANTI-THYMOCYTE GLOBULIN NOS [Concomitant]
  4. CYCLOSPORINE [Concomitant]
  5. MYCOPHENOLATE MOFETIL [Concomitant]

REACTIONS (3)
  - GRAFT VERSUS HOST DISEASE [None]
  - INFECTION [None]
  - MALIGNANT NEOPLASM PROGRESSION [None]
